FAERS Safety Report 5863840-8 (Version None)
Quarter: 2008Q3

REPORT INFORMATION
  Report Type: 
  Country: None (occurrence: None)
  Receive Date: 20080827
  Receipt Date: 20080812
  Transmission Date: 20090109
  Serious: No
  Sender: FDA-Public Use
  Company Number: 8035950

PATIENT
  Sex: Female
  Weight: 61.4 kg

DRUGS (7)
  1. KEPPRA [Suspect]
     Indication: EPILEPSY
     Dosage: 250 MG 2/D PO
     Route: 048
  2. PEPCID [Concomitant]
  3. VICODIN [Concomitant]
  4. MIRALAX [Concomitant]
  5. DGOXEN [Concomitant]
  6. COUMADIN [Concomitant]
  7. ATENOLOL [Concomitant]

REACTIONS (6)
  - ASTHENIA [None]
  - CONDITION AGGRAVATED [None]
  - DIZZINESS [None]
  - FATIGUE [None]
  - HEADACHE [None]
  - NAUSEA [None]
